FAERS Safety Report 24799843 (Version 1)
Quarter: 2025Q1

REPORT INFORMATION
  Report Type: Spontaneous
  Country: US (occurrence: US)
  Receive Date: 20250102
  Receipt Date: 20250102
  Transmission Date: 20250408
  Serious: Yes (Other)
  Sender: PFIZER
  Company Number: US-PFIZER INC-202400332533

PATIENT
  Age: 63 Year
  Sex: Female

DRUGS (1)
  1. XELJANZ XR [Suspect]
     Active Substance: TOFACITINIB CITRATE
     Indication: Rheumatoid arthritis
     Dosage: 11 MG, DAILY
     Route: 048
     Dates: start: 202112

REACTIONS (7)
  - Chronic cutaneous lupus erythematosus [Unknown]
  - Autoimmune arthritis [Unknown]
  - Sjogren^s syndrome [Recovered/Resolved]
  - Arthritis [Unknown]
  - Synovitis [Unknown]
  - Spinal osteoarthritis [Unknown]
  - Osteoarthritis [Unknown]
